FAERS Safety Report 4924078-1 (Version None)
Quarter: 2006Q1

REPORT INFORMATION
  Report Type: 
  Country: None (occurrence: None)
  Receive Date: 20060227
  Receipt Date: 20051108
  Transmission Date: 20060701
  Serious: No
  Sender: FDA-Public Use
  Company Number: US-GLAXOSMITHKLINE-A0581422A

PATIENT
  Age: 82 Year
  Sex: Male

DRUGS (4)
  1. WELLBUTRIN XL [Suspect]
     Indication: DEPRESSION
     Dosage: 150MG PER DAY
     Route: 048
  2. AVANDIA [Concomitant]
  3. FLOMAX [Concomitant]
  4. ASPIRIN [Concomitant]

REACTIONS (1)
  - DRUG INEFFECTIVE [None]
